FAERS Safety Report 5032355-1 (Version None)
Quarter: 2006Q2

REPORT INFORMATION
  Report Type: 
  Country: None (occurrence: None)
  Receive Date: 20060621
  Receipt Date: 20060621
  Transmission Date: 20061013
  Serious: Yes (Disabling)
  Sender: FDA-Public Use
  Company Number: None

PATIENT
  Age: 46 Year
  Sex: Female
  Weight: 44.4525 kg

DRUGS (3)
  1. VALPROIC ACID [Suspect]
     Indication: CONVULSION PROPHYLAXIS
     Dosage: 500 MG TID PO
     Route: 048
     Dates: start: 20060510, end: 20060605
  2. CYCLOBENAZAPRINE [Concomitant]
  3. IBUPROFEN [Concomitant]

REACTIONS (5)
  - PHOTOSENSITIVITY REACTION [None]
  - RASH [None]
  - RASH ERYTHEMATOUS [None]
  - RASH MACULAR [None]
  - SKIN ULCER [None]
